FAERS Safety Report 10243577 (Version 2)
Quarter: 2014Q2

REPORT INFORMATION
  Report Type: Spontaneous
  Country: US (occurrence: None)
  Receive Date: 20140616
  Receipt Date: 20140630
  Transmission Date: 20141212
  Serious: Yes (Hospitalization)
  Sender: FDA-Public Use
  Company Number: UNT-2014-001253

PATIENT
  Age: 66 Year
  Sex: Female
  Weight: 81.6 kg

DRUGS (5)
  1. REMODULIN [Suspect]
     Indication: COR PULMONALE CHRONIC
     Dosage: 0.039 UG/KG, CONTINUING, SUBCUTANEOUS
     Route: 058
     Dates: start: 20070601
  2. REMODULIN [Suspect]
     Indication: SYSTEMIC LUPUS ERYTHEMATOSUS
     Dosage: 0.039 UG/KG, CONTINUING, SUBCUTANEOUS
     Route: 058
     Dates: start: 20070601
  3. REMODULIN [Suspect]
     Indication: PULMONARY ARTERIAL HYPERTENSION
     Dosage: 0.039 UG/KG, CONTINUING, SUBCUTANEOUS
     Route: 058
     Dates: start: 20070601
  4. ADCIRCA (TADALAFIL) [Concomitant]
  5. LETAIRIS (AMBRISENTAN) [Concomitant]

REACTIONS (1)
  - Mastoiditis [None]
